FAERS Safety Report 10066440 (Version 2)
Quarter: 2014Q2

REPORT INFORMATION
  Report Type: Report from Study
  Country: CA (occurrence: CA)
  Receive Date: 20140408
  Receipt Date: 20140506
  Transmission Date: 20141212
  Serious: Yes (Death, Life-Threatening, Hospitalization, Other)
  Sender: FDA-Public Use
  Company Number: PHHY2014CA041877

PATIENT
  Age: 71 Year
  Sex: Female

DRUGS (11)
  1. ACLASTA [Suspect]
     Indication: OSTEOPOROSIS POSTMENOPAUSAL
     Dosage: 5 MG, UNK
     Route: 042
     Dates: start: 20110609
  2. ACLASTA [Suspect]
     Indication: OSTEOPOROSIS
     Dosage: 5 MG, UNK
     Route: 042
     Dates: start: 20120828
  3. CALCIUM CARBONATE [Concomitant]
     Dosage: 500 MG, QD
     Route: 048
     Dates: start: 20121016
  4. ADVAIR [Concomitant]
     Dosage: 2 DF, BID
     Dates: start: 20130227
  5. PREVACID [Concomitant]
     Dosage: 30 MG, QD
     Route: 048
     Dates: start: 20130806
  6. PREVACID [Concomitant]
     Dosage: 15 MG, QD
     Route: 048
     Dates: start: 20130806
  7. APO-MIRTAZAPINE [Concomitant]
     Dosage: 300 MG, QD
     Route: 048
     Dates: start: 20130806
  8. ZOPICLONE [Concomitant]
     Dosage: 5 MG, QD
     Dates: start: 201210
  9. TYLENOL [Concomitant]
  10. SALBUTAMOL [Concomitant]
     Dosage: 2 DF, BID
  11. FOSAVANCE [Concomitant]
     Dosage: 700 U, UNK

REACTIONS (20)
  - Cardiac failure congestive [Fatal]
  - Diastolic dysfunction [Fatal]
  - Mastoiditis [Fatal]
  - Pneumonia [Fatal]
  - Rhonchi [Fatal]
  - Dyspnoea [Fatal]
  - Sinus tachycardia [Fatal]
  - Blood potassium decreased [Unknown]
  - Septic shock [Unknown]
  - Pleural effusion [Unknown]
  - Pallor [Unknown]
  - Cold sweat [Unknown]
  - Pneumonitis [Unknown]
  - Pulmonary oedema [Unknown]
  - Loss of consciousness [Unknown]
  - Hypogammaglobulinaemia [Unknown]
  - Diverticulum [Unknown]
  - Depression [Unknown]
  - Temporomandibular joint syndrome [Unknown]
  - Pain in jaw [Unknown]
